FAERS Safety Report 13240915 (Version 5)
Quarter: 2019Q3

REPORT INFORMATION
  Report Type: Spontaneous
  Country: US (occurrence: US)
  Receive Date: 20170216
  Receipt Date: 20190818
  Transmission Date: 20191004
  Serious: Yes (Other)
  Sender: FDA-Public Use
  Company Number: US-TEVA-741168ACC

PATIENT
  Age: 24 Year
  Sex: Female
  Weight: 83.54 kg

DRUGS (1)
  1. PARAGARD T 380A [Suspect]
     Active Substance: COPPER
     Route: 065
     Dates: start: 20140107, end: 20160107

REACTIONS (3)
  - Abortion spontaneous [Unknown]
  - Maternal exposure during pregnancy [Unknown]
  - Pregnancy on contraceptive [Unknown]

NARRATIVE: CASE EVENT DATE: 20160202
